FAERS Safety Report 9280186 (Version 1)
Quarter: 2013Q2

REPORT INFORMATION
  Report Type: Report from Study
  Country: CR (occurrence: CR)
  Receive Date: 20130509
  Receipt Date: 20130509
  Transmission Date: 20140414
  Serious: Yes (Hospitalization)
  Sender: FDA-Public Use
  Company Number: CR-ROCHE-1222093

PATIENT
  Sex: Female

DRUGS (3)
  1. BONVIVA [Suspect]
     Indication: OSTEOPOROSIS
     Route: 048
     Dates: start: 2009, end: 20130307
  2. LEVOTHYROXINE [Concomitant]
     Indication: HYPOTHYROIDISM
  3. AMLODIPINE [Concomitant]
     Indication: HYPERTENSION

REACTIONS (1)
  - Gastrointestinal neoplasm [Recovered/Resolved]
